FAERS Safety Report 5884174-1 (Version None)
Quarter: 2008Q3

REPORT INFORMATION
  Report Type: 
  Country: None (occurrence: None)
  Receive Date: 20080911
  Receipt Date: 20080904
  Transmission Date: 20090109
  Serious: Yes (Death, Hospitalization)
  Sender: FDA-Public Use
  Company Number: 2008AL006020

PATIENT
  Age: 79 Year
  Sex: Female

DRUGS (6)
  1. DIGOXIN [Suspect]
     Indication: CARDIAC FAILURE CONGESTIVE
     Dosage: 0.125MG, DAILY, PO
     Route: 048
  2. FUROSEMIDE [Concomitant]
  3. COREG [Concomitant]
  4. PROTONIX [Concomitant]
  5. FERROUS SULFATE TAB [Concomitant]
  6. HYDRALAZINE HCL [Concomitant]

REACTIONS (4)
  - BRAIN INJURY [None]
  - CARDIAC VALVE DISEASE [None]
  - CARDIO-RESPIRATORY ARREST [None]
  - FALL [None]
